FAERS Safety Report 16445767 (Version 1)
Quarter: 2019Q2

REPORT INFORMATION
  Report Type: Report from Study
  Country: ES (occurrence: ES)
  Receive Date: 20190618
  Receipt Date: 20190618
  Transmission Date: 20190711
  Serious: Yes (Hospitalization)
  Sender: FDA-Public Use
  Company Number: ES-MYLANLABS-2019M1055969

PATIENT
  Age: 17 Year
  Sex: Female

DRUGS (3)
  1. BENZETACIL                         /00000904/ [Suspect]
     Active Substance: PENICILLIN G BENZATHINE
     Indication: PYREXIA
     Dosage: 1.200.000 U/4 ML
     Route: 030
     Dates: start: 20180129, end: 20180129
  2. IBUPROFEN. [Suspect]
     Active Substance: IBUPROFEN
     Indication: PYREXIA
     Dosage: UNK
     Route: 048
     Dates: start: 20180122, end: 20180202
  3. AMOXICILINA                        /00249601/ [Suspect]
     Active Substance: AMOXICILLIN
     Indication: PYREXIA
     Dosage: UNK
     Dates: start: 201801, end: 201801

REACTIONS (1)
  - Agranulocytosis [Recovered/Resolved]

NARRATIVE: CASE EVENT DATE: 20180202
